FAERS Safety Report 7311509-5 (Version None)
Quarter: 2011Q1

REPORT INFORMATION
  Report Type: 
  Country: None (occurrence: None)
  Receive Date: 20110216
  Receipt Date: 20110216
  Transmission Date: 20110831
  Serious: Yes (Life-Threatening, Hospitalization)
  Sender: FDA-Public Use
  Company Number: None

PATIENT
  Age: 22 Year
  Sex: Female
  Weight: 85 kg

DRUGS (2)
  1. NUVARING [Suspect]
     Indication: CONTRACEPTION
     Dosage: 1 RING EVERY 3 WEEKS VAG
     Route: 067
     Dates: start: 20090101, end: 20110214
  2. SINGULAIR [Concomitant]

REACTIONS (6)
  - MUSCLE SPASMS [None]
  - VIRAL UPPER RESPIRATORY TRACT INFECTION [None]
  - COUGH [None]
  - PULMONARY EMBOLISM [None]
  - FLANK PAIN [None]
  - CEREBROVASCULAR ACCIDENT [None]
